FAERS Safety Report 9120533 (Version 1)
Quarter: 2013Q1

REPORT INFORMATION
  Report Type: Spontaneous
  Country: DE (occurrence: DE)
  Receive Date: 20130226
  Receipt Date: 20130226
  Transmission Date: 20140127
  Serious: Yes (Other)
  Sender: FDA-Public Use
  Company Number: DE-ROCHE-1194633

PATIENT
  Sex: Female

DRUGS (4)
  1. LUCENTIS [Suspect]
     Indication: AGE-RELATED MACULAR DEGENERATION
     Route: 050
     Dates: start: 2010
  2. LUCENTIS [Suspect]
     Route: 050
     Dates: start: 2012
  3. LUCENTIS [Suspect]
     Route: 050
     Dates: start: 201211
  4. LUCENTIS [Suspect]
     Route: 050
     Dates: start: 20121207

REACTIONS (5)
  - Intraocular pressure fluctuation [Unknown]
  - Intervertebral disc protrusion [Unknown]
  - Bladder disorder [Not Recovered/Not Resolved]
  - Hypersensitivity [Unknown]
  - Malaise [Unknown]
